FAERS Safety Report 8211733-3 (Version None)
Quarter: 2012Q1

REPORT INFORMATION
  Report Type: 
  Country: None (occurrence: None)
  Receive Date: 20120315
  Receipt Date: 20120307
  Transmission Date: 20120608
  Serious: Yes (Other)
  Sender: FDA-Public Use
  Company Number: US-JNJFOC-20120213802

PATIENT
  Sex: Female
  Weight: 97.52 kg

DRUGS (16)
  1. ADVAIR DISKUS 100/50 [Concomitant]
  2. TYLENOL [Concomitant]
     Indication: ARTHRITIS
     Route: 048
  3. DILTIAZEM [Concomitant]
     Indication: ATRIAL FIBRILLATION
     Route: 048
  4. LOSARTAN POTASSIUM AND HYDROCHLOROTHIAZIDE [Concomitant]
     Indication: DIURETIC THERAPY
     Route: 048
     Dates: start: 20120207
  5. PRILOSEC [Concomitant]
     Indication: GASTROINTESTINAL DISORDER THERAPY
  6. WELLBUTRIN XL [Concomitant]
     Indication: FIBROMYALGIA
     Route: 048
  7. ALPRAZOLAM [Concomitant]
     Indication: SLEEP DISORDER
  8. ZYRTEC [Concomitant]
     Indication: MULTIPLE ALLERGIES
  9. ASTELIN [Concomitant]
     Indication: SLEEP DISORDER
  10. XARELTO [Suspect]
     Indication: ATRIAL FIBRILLATION
     Route: 048
     Dates: start: 20120213
  11. SPIRONOLACTONE [Concomitant]
     Indication: BLOOD PRESSURE
     Route: 048
  12. VITAMIN D [Concomitant]
     Route: 048
  13. CALCIUM [Concomitant]
     Route: 048
  14. ASTELIN [Concomitant]
     Indication: NASAL CONGESTION
  15. DIGOXIN [Concomitant]
     Route: 048
  16. ASCORBIC ACID [Concomitant]
     Route: 048

REACTIONS (10)
  - CONTUSION [None]
  - BLOOD PRESSURE DECREASED [None]
  - INFLUENZA [None]
  - OEDEMA PERIPHERAL [None]
  - PAIN IN EXTREMITY [None]
  - PAIN [None]
  - PNEUMONIA [None]
  - FATIGUE [None]
  - ASTHENIA [None]
  - NASOPHARYNGITIS [None]
